FAERS Safety Report 21259026 (Version 7)
Quarter: 2022Q4

REPORT INFORMATION
  Report Type: Other
  Country: CA (occurrence: None)
  Receive Date: 20220826
  Receipt Date: 20221102
  Transmission Date: 20230112
  Serious: Yes (Hospitalization, Other)
  Sender: FDA-Public Use
  Company Number: CA-ROCHE-3163473

PATIENT
  Sex: Female

DRUGS (3)
  1. OCREVUS [Suspect]
     Active Substance: OCRELIZUMAB
     Indication: Relapsing-remitting multiple sclerosis
     Dosage: 300 MG AT DAY 0 AND 14, THEN 600 MG EVERY 6 MONTH
     Route: 042
     Dates: start: 20210128
  2. DOXYCYCLINE [Concomitant]
     Active Substance: DOXYCYCLINE
  3. METRONIDAZOLE [Concomitant]
     Active Substance: METRONIDAZOLE

REACTIONS (7)
  - Abortion spontaneous [Unknown]
  - Herpes virus infection [Unknown]
  - Nausea [Unknown]
  - Vaginal haemorrhage [Unknown]
  - Pain [Unknown]
  - Maternal exposure before pregnancy [Unknown]
  - White blood cell count decreased [Unknown]
